FAERS Safety Report 21990151 (Version 2)
Quarter: 2023Q1

REPORT INFORMATION
  Report Type: Spontaneous
  Country: FR (occurrence: FR)
  Receive Date: 20230214
  Receipt Date: 20230215
  Transmission Date: 20230417
  Serious: Yes (Hospitalization)
  Sender: FDA-Public Use
  Company Number: None

PATIENT
  Age: 75 Year
  Sex: Male

DRUGS (10)
  1. KEYTRUDA [Suspect]
     Active Substance: PEMBROLIZUMAB
     Indication: Basosquamous carcinoma
     Dosage: 1 DOSAGE FORM, CYCLICAL
     Route: 042
     Dates: start: 202205, end: 20221219
  2. ERBITUX [Suspect]
     Active Substance: CETUXIMAB
     Indication: Basosquamous carcinoma
     Dosage: 1 DOSAGE FORM, CYCLICAL
     Route: 042
     Dates: start: 20221114, end: 20221219
  3. PANTOPRAZOLE [Concomitant]
     Active Substance: PANTOPRAZOLE
  4. SKENAN [Concomitant]
     Active Substance: MORPHINE SULFATE
  5. PREGABALIN [Concomitant]
     Active Substance: PREGABALIN
  6. ACETAMINOPHEN [Concomitant]
     Active Substance: ACETAMINOPHEN
  7. FLUOXETINE HYDROCHLORIDE [Concomitant]
     Active Substance: FLUOXETINE HYDROCHLORIDE
  8. ZOPICLONE [Concomitant]
     Active Substance: ZOPICLONE
  9. POLYETHYLENE GLYCOLS [Concomitant]
     Active Substance: POLYETHYLENE GLYCOLS
  10. AMLODIPINE [Concomitant]
     Active Substance: AMLODIPINE BESYLATE

REACTIONS (1)
  - Extremity necrosis [Not Recovered/Not Resolved]

NARRATIVE: CASE EVENT DATE: 20230102
